FAERS Safety Report 23593969 (Version 1)
Quarter: 2024Q1

REPORT INFORMATION
  Report Type: Report from Study
  Country: DO (occurrence: DO)
  Receive Date: 20240305
  Receipt Date: 20240305
  Transmission Date: 20240410
  Serious: Yes (Other)
  Sender: FDA-Public Use
  Company Number: DO-ABBVIE-5662776

PATIENT
  Age: 42 Year
  Sex: Female
  Weight: 68 kg

DRUGS (3)
  1. HUMIRA [Suspect]
     Active Substance: ADALIMUMAB
     Indication: Ankylosing spondylitis
     Dosage: - FORM STRENGTH: 40 MILLIGRAM
     Route: 058
     Dates: start: 20121106, end: 20240214
  2. PENTASA [Concomitant]
     Active Substance: MESALAMINE
     Indication: Colitis
     Dosage: - FREQUENCY TEXT: 2 TABLETS 3 TIMES, NOW 1 TABLET ,2 DAILY
     Route: 048
  3. SULFASALAZINE [Concomitant]
     Active Substance: SULFASALAZINE
     Indication: Colitis
     Route: 048

REACTIONS (4)
  - Colitis ulcerative [Recovered/Resolved]
  - Influenza [Recovered/Resolved]
  - Gastrointestinal bacterial infection [Recovered/Resolved]
  - Oropharyngeal discomfort [Recovered/Resolved]

NARRATIVE: CASE EVENT DATE: 20231001
